FAERS Safety Report 25805460 (Version 2)
Quarter: 2025Q4

REPORT INFORMATION
  Report Type: Spontaneous
  Country: US (occurrence: US)
  Receive Date: 20250916
  Receipt Date: 20251017
  Transmission Date: 20260117
  Serious: No
  Sender: ADAMAS PHARMA
  Company Number: US-002147023-ADM202410-003855

PATIENT
  Age: 70 Year
  Sex: Male

DRUGS (2)
  1. GOCOVRI [Suspect]
     Active Substance: AMANTADINE
     Indication: Dyskinesia
     Route: 048
     Dates: start: 20190305
  2. GOCOVRI [Suspect]
     Active Substance: AMANTADINE
     Indication: Parkinson^s disease

REACTIONS (2)
  - Dry mouth [Unknown]
  - Product dose omission issue [Unknown]
